FAERS Safety Report 10653661 (Version 3)
Quarter: 2015Q4

REPORT INFORMATION
  Report Type: Report from Study
  Country: NL (occurrence: NL)
  Receive Date: 20141216
  Receipt Date: 20151021
  Transmission Date: 20160304
  Serious: Yes (Hospitalization)
  Sender: FDA-Public Use
  Company Number: NL-ROCHE-1505679

PATIENT
  Age: 64 Year
  Sex: Female

DRUGS (15)
  1. TRASTUZUMAB [Suspect]
     Active Substance: TRASTUZUMAB
     Dosage: DAY 1, DAY 8 AND DAY 15/ EVERY 3 WEEKS?MOST RECENT DOSE ON 01/SEP/2015
     Route: 058
  2. TRASTUZUMAB [Suspect]
     Active Substance: TRASTUZUMAB
     Indication: BREAST CANCER
     Dosage: LOADING DOSE
     Route: 058
     Dates: start: 20150527
  3. FERROFUMARAAT [Concomitant]
     Dosage: 3 DAILY DOSE
     Route: 065
     Dates: start: 201504
  4. PERTUZUMAB [Suspect]
     Active Substance: PERTUZUMAB
     Indication: BREAST CANCER
     Dosage: LOADING DOSE
     Route: 042
     Dates: start: 20141030
  5. CARBOPLATIN. [Suspect]
     Active Substance: CARBOPLATIN
     Dosage: DOSE REDUCED
     Route: 042
     Dates: start: 20141030
  6. TRASTUZUMAB [Suspect]
     Active Substance: TRASTUZUMAB
     Dosage: MOST RECENT DOSE: 13/OCT/2015
     Route: 058
     Dates: start: 20150527
  7. TRASTUZUMAB [Suspect]
     Active Substance: TRASTUZUMAB
     Indication: BREAST CANCER
     Dosage: LOADING DOSE
     Route: 042
     Dates: start: 20141030, end: 20150506
  8. HYDROCHLOROTHIAZIDE. [Concomitant]
     Active Substance: HYDROCHLOROTHIAZIDE
     Route: 065
     Dates: start: 201311, end: 20141209
  9. CARBOPLATIN. [Suspect]
     Active Substance: CARBOPLATIN
     Indication: BREAST CANCER
     Dosage: MOST RECENT DOSE ON 27/NOV/2014?DAY 1 TO AND DAY 8?MOST RECENT DOSE ON 13/MAY/2015
     Route: 042
     Dates: start: 20141030
  10. LOPERAMIDE [Concomitant]
     Active Substance: LOPERAMIDE
     Route: 065
     Dates: start: 20141121
  11. PACLITAXEL. [Suspect]
     Active Substance: PACLITAXEL
     Dosage: DOSE REDUCED
     Route: 042
  12. PERTUZUMAB [Suspect]
     Active Substance: PERTUZUMAB
     Dosage: MOST RECENT DOSE ON 20/NOV/2014?MAINTENANCE DOSE
     Route: 042
  13. TRASTUZUMAB [Suspect]
     Active Substance: TRASTUZUMAB
     Dosage: MOST RECENT DOSE ON 20/NOV/2014: 600 MG DOSE?MAINTENANCE DOSE
     Route: 042
  14. PACLITAXEL. [Suspect]
     Active Substance: PACLITAXEL
     Indication: BREAST CANCER
     Dosage: MOST RECENT DOSE ON 27/NOV/2014 ?DAY 1 TO DAY 8 Q3W?MOST RECENT DOSE ON 13/MAY/2015
     Route: 042
     Dates: start: 20141030
  15. TAMOXIFEN [Concomitant]
     Active Substance: TAMOXIFEN
     Route: 065
     Dates: start: 20150803

REACTIONS (2)
  - Diarrhoea [Recovering/Resolving]
  - Renal failure [Recovering/Resolving]

NARRATIVE: CASE EVENT DATE: 20141209
